FAERS Safety Report 11408948 (Version 49)
Quarter: 2021Q2

REPORT INFORMATION
  Report Type: Other
  Country: CA (occurrence: CA)
  Receive Date: 20150824
  Receipt Date: 20210621
  Transmission Date: 20210716
  Serious: Yes (Hospitalization, Other)
  Sender: FDA-Public Use
  Company Number: CA-ROCHE-1622901

PATIENT
  Age: 57 Year
  Sex: Female

DRUGS (36)
  1. XOLAIR [Suspect]
     Active Substance: OMALIZUMAB
     Route: 058
     Dates: start: 20150115
  2. XOLAIR [Suspect]
     Active Substance: OMALIZUMAB
     Route: 058
     Dates: start: 20171130
  3. XOLAIR [Suspect]
     Active Substance: OMALIZUMAB
     Route: 058
     Dates: start: 20191003
  4. SINGULAIR [Concomitant]
     Active Substance: MONTELUKAST SODIUM
     Indication: PRODUCT USED FOR UNKNOWN INDICATION
     Dosage: UNK
     Route: 065
  5. XOLAIR [Suspect]
     Active Substance: OMALIZUMAB
     Route: 058
     Dates: start: 20141230
  6. XOLAIR [Suspect]
     Active Substance: OMALIZUMAB
     Route: 058
     Dates: start: 20161117
  7. XOLAIR [Suspect]
     Active Substance: OMALIZUMAB
     Route: 058
     Dates: start: 20170131
  8. XOLAIR [Suspect]
     Active Substance: OMALIZUMAB
     Route: 058
     Dates: start: 20170323
  9. XOLAIR [Suspect]
     Active Substance: OMALIZUMAB
     Route: 058
     Dates: start: 20180823
  10. XOLAIR [Suspect]
     Active Substance: OMALIZUMAB
     Route: 058
     Dates: start: 20190905
  11. XOLAIR [Suspect]
     Active Substance: OMALIZUMAB
     Route: 058
     Dates: start: 20191212
  12. XOLAIR [Suspect]
     Active Substance: OMALIZUMAB
     Route: 058
     Dates: start: 20140424
  13. XOLAIR [Suspect]
     Active Substance: OMALIZUMAB
     Route: 058
     Dates: start: 20170208
  14. XOLAIR [Suspect]
     Active Substance: OMALIZUMAB
     Route: 058
     Dates: start: 20180405
  15. XOLAIR [Suspect]
     Active Substance: OMALIZUMAB
     Route: 058
  16. VENTOLINE [Concomitant]
     Active Substance: ALBUTEROL
     Indication: HYPERSENSITIVITY
  17. ALVESCO [Concomitant]
     Active Substance: CICLESONIDE
     Indication: PRODUCT USED FOR UNKNOWN INDICATION
     Dosage: 2 INHALATIONS
     Route: 055
  18. XOLAIR [Suspect]
     Active Substance: OMALIZUMAB
     Indication: ASTHMA
     Route: 058
     Dates: start: 20140327
  19. XOLAIR [Suspect]
     Active Substance: OMALIZUMAB
     Route: 058
     Dates: start: 20140717
  20. XOLAIR [Suspect]
     Active Substance: OMALIZUMAB
     Route: 058
     Dates: start: 20141106
  21. XOLAIR [Suspect]
     Active Substance: OMALIZUMAB
     Route: 058
     Dates: start: 20180419
  22. XOLAIR [Suspect]
     Active Substance: OMALIZUMAB
     Route: 058
     Dates: start: 20200305
  23. VENTOLINE [Concomitant]
     Active Substance: ALBUTEROL
     Indication: ASTHMA
     Dosage: 6 TIMES IN ONE DAY
     Route: 065
  24. XOLAIR [Suspect]
     Active Substance: OMALIZUMAB
     Route: 058
     Dates: start: 20140605
  25. XOLAIR [Suspect]
     Active Substance: OMALIZUMAB
     Route: 058
     Dates: start: 20170309
  26. XOLAIR [Suspect]
     Active Substance: OMALIZUMAB
     Route: 058
     Dates: start: 20170511
  27. ADVAIR HFA [Concomitant]
     Active Substance: FLUTICASONE PROPIONATE\SALMETEROL XINAFOATE
     Indication: PRODUCT USED FOR UNKNOWN INDICATION
     Dosage: 2 INHALATIONS
     Route: 055
  28. XOLAIR [Suspect]
     Active Substance: OMALIZUMAB
     Route: 058
     Dates: start: 20140522
  29. XOLAIR [Suspect]
     Active Substance: OMALIZUMAB
     Route: 058
     Dates: start: 20170112
  30. XOLAIR [Suspect]
     Active Substance: OMALIZUMAB
     Route: 058
     Dates: start: 20190124
  31. XOLAIR [Suspect]
     Active Substance: OMALIZUMAB
     Route: 058
     Dates: start: 20200220
  32. XOLAIR [Suspect]
     Active Substance: OMALIZUMAB
     Route: 058
     Dates: start: 20170420
  33. XOLAIR [Suspect]
     Active Substance: OMALIZUMAB
     Route: 058
     Dates: start: 20170601
  34. XOLAIR [Suspect]
     Active Substance: OMALIZUMAB
     Route: 058
     Dates: start: 20160114
  35. XOLAIR [Suspect]
     Active Substance: OMALIZUMAB
     Route: 058
     Dates: start: 20170615
  36. XOLAIR [Suspect]
     Active Substance: OMALIZUMAB
     Route: 058
     Dates: start: 20180208

REACTIONS (93)
  - Chronic obstructive pulmonary disease [Unknown]
  - Concussion [Unknown]
  - Depression [Unknown]
  - Nasal discharge discolouration [Unknown]
  - Seasonal allergy [Unknown]
  - Papule [Unknown]
  - Asthma [Unknown]
  - Discomfort [Unknown]
  - Influenza [Recovering/Resolving]
  - Pruritus [Unknown]
  - Product dose omission issue [Unknown]
  - Oral mucosal eruption [Unknown]
  - Allergy to chemicals [Unknown]
  - Body temperature increased [Recovering/Resolving]
  - Dysphonia [Unknown]
  - Abdominal distension [Unknown]
  - Nasal obstruction [Unknown]
  - Pyrexia [Recovered/Resolved]
  - Nausea [Recovering/Resolving]
  - Pain in extremity [Not Recovered/Not Resolved]
  - Secretion discharge [Unknown]
  - Pain [Unknown]
  - Nasopharyngitis [Unknown]
  - Feeling hot [Unknown]
  - Arteriosclerosis [Unknown]
  - Migraine [Unknown]
  - Arthralgia [Recovered/Resolved]
  - Anaphylactic shock [Unknown]
  - Rales [Unknown]
  - Intervertebral disc protrusion [Unknown]
  - Atelectasis [Unknown]
  - Cytomegalovirus infection [Unknown]
  - Memory impairment [Unknown]
  - Oxygen saturation decreased [Unknown]
  - Breath sounds abnormal [Unknown]
  - Dizziness [Recovering/Resolving]
  - Fatigue [Unknown]
  - Blood pressure systolic increased [Recovered/Resolved]
  - Insomnia [Unknown]
  - Dyspnoea [Unknown]
  - Hypertension [Unknown]
  - Skin lesion [Unknown]
  - Aphonia [Unknown]
  - Lymph node pain [Recovering/Resolving]
  - Respiratory rate increased [Not Recovered/Not Resolved]
  - Fall [Unknown]
  - Stress [Unknown]
  - Dyschromatopsia [Unknown]
  - Breast injury [Recovered/Resolved]
  - Alopecia [Unknown]
  - Anxiety [Unknown]
  - Hepatic cyst [Unknown]
  - Oedema [Unknown]
  - Myalgia [Unknown]
  - Visual impairment [Unknown]
  - Infectious mononucleosis [Unknown]
  - Malaise [Not Recovered/Not Resolved]
  - Limb injury [Unknown]
  - Joint injury [Unknown]
  - Chest discomfort [Unknown]
  - Back pain [Unknown]
  - Hyperhidrosis [Unknown]
  - Anaphylactic shock [Unknown]
  - Nervousness [Unknown]
  - Nightmare [Unknown]
  - Dysgeusia [Unknown]
  - Haemorrhage [Unknown]
  - Tremor [Unknown]
  - Haemarthrosis [Unknown]
  - Contusion [Unknown]
  - Chest pain [Unknown]
  - Hypokinesia [Unknown]
  - Neck pain [Unknown]
  - Oropharyngeal pain [Unknown]
  - Viral infection [Unknown]
  - Herpes zoster [Recovering/Resolving]
  - Breast mass [Unknown]
  - Wound complication [Unknown]
  - Swelling [Unknown]
  - Abdominal pain upper [Recovering/Resolving]
  - Drug hypersensitivity [Unknown]
  - Eating disorder [Recovering/Resolving]
  - Stomach mass [Unknown]
  - Asthenia [Unknown]
  - Depressed mood [Unknown]
  - Ligament sprain [Unknown]
  - Speech disorder [Unknown]
  - Diarrhoea [Recovering/Resolving]
  - Headache [Recovering/Resolving]
  - Hypoaesthesia [Recovering/Resolving]
  - Hepatic mass [Unknown]
  - Lymphadenopathy [Recovering/Resolving]
  - Traumatic lung injury [Unknown]

NARRATIVE: CASE EVENT DATE: 20140327
